FAERS Safety Report 5319466-8 (Version None)
Quarter: 2007Q2

REPORT INFORMATION
  Report Type: 
  Country: None (occurrence: None)
  Receive Date: 20070508
  Receipt Date: 20070427
  Transmission Date: 20071010
  Serious: Yes (Other)
  Sender: FDA-Public Use
  Company Number: US-PFIZER INC-2007026937

PATIENT
  Sex: Female
  Weight: 68 kg

DRUGS (6)
  1. CHANTIX [Suspect]
     Indication: SMOKING CESSATION THERAPY
  2. LISINOPRIL [Concomitant]
  3. ZOCOR [Concomitant]
  4. CALCIUM CHLORIDE [Concomitant]
  5. VITAMIN B-12 [Concomitant]
  6. VITAMINS [Concomitant]

REACTIONS (6)
  - BLOOD PRESSURE INCREASED [None]
  - DISORIENTATION [None]
  - HEART RATE DECREASED [None]
  - HEART RATE INCREASED [None]
  - NAUSEA [None]
  - WEIGHT INCREASED [None]
